FAERS Safety Report 25492742 (Version 1)
Quarter: 2025Q2

REPORT INFORMATION
  Report Type: Spontaneous
  Country: CA (occurrence: CA)
  Receive Date: 20250630
  Receipt Date: 20250630
  Transmission Date: 20250717
  Serious: Yes (Life-Threatening, Other)
  Sender: TEVA
  Company Number: CA-TEVA-VS-3347113

PATIENT
  Age: 66 Year
  Sex: Female

DRUGS (2)
  1. ATENOLOL [Suspect]
     Active Substance: ATENOLOL
     Indication: Mitral valve incompetence
     Route: 065
  2. ATIVAN [Concomitant]
     Active Substance: LORAZEPAM
     Indication: Panic attack
     Route: 065

REACTIONS (7)
  - Loss of consciousness [Not Recovered/Not Resolved]
  - Anxiety [Not Recovered/Not Resolved]
  - Tremor [Not Recovered/Not Resolved]
  - Dizziness [Not Recovered/Not Resolved]
  - Blood pressure fluctuation [Not Recovered/Not Resolved]
  - Depression [Not Recovered/Not Resolved]
  - Palpitations [Not Recovered/Not Resolved]
